FAERS Safety Report 13896767 (Version 1)
Quarter: 2017Q3

REPORT INFORMATION
  Report Type: Spontaneous
  Country: US (occurrence: None)
  Receive Date: 20170822
  Receipt Date: 20170822
  Transmission Date: 20171127
  Serious: Yes (Hospitalization)
  Sender: FDA-Public Use
  Company Number: None

PATIENT
  Age: 8 Year
  Sex: Male
  Weight: 55.9 kg

DRUGS (3)
  1. DAUNORUBICIN [Suspect]
     Active Substance: DAUNORUBICIN
     Dates: start: 20140521, end: 20140605
  2. PEG-ASPARGASE [Suspect]
     Active Substance: PEGASPARGASE
     Dates: start: 20140524, end: 20140524
  3. VINCRISTINE [Suspect]
     Active Substance: VINCRISTINE
     Dates: start: 20140521, end: 20140605

REACTIONS (5)
  - Hepatic steatosis [None]
  - Hepatic enzyme increased [None]
  - Jaundice [None]
  - Drug-induced liver injury [None]
  - Hepatotoxicity [None]

NARRATIVE: CASE EVENT DATE: 20140609
